FAERS Safety Report 12141080 (Version 2)
Quarter: 2017Q1

REPORT INFORMATION
  Report Type: Spontaneous
  Country: US (occurrence: US)
  Receive Date: 20160303
  Receipt Date: 20170202
  Transmission Date: 20170428
  Serious: Yes (Hospitalization, Other)
  Sender: FDA-Public Use
  Company Number: US-ELI_LILLY_AND_COMPANY-US201602009348

PATIENT
  Age: 67 Year
  Sex: Male

DRUGS (4)
  1. CYMBALTA [Suspect]
     Active Substance: DULOXETINE HYDROCHLORIDE
     Indication: PAIN
     Dosage: 30 MG, QD
     Route: 048
     Dates: start: 20130315, end: 20130411
  2. CYMBALTA [Suspect]
     Active Substance: DULOXETINE HYDROCHLORIDE
     Indication: DEPRESSION
     Dosage: 60 MG, QD
     Route: 048
     Dates: start: 20130412, end: 20130731
  3. CYMBALTA [Suspect]
     Active Substance: DULOXETINE HYDROCHLORIDE
     Dosage: 60 MG, BID
     Route: 048
     Dates: start: 20131209, end: 201403
  4. CYMBALTA [Suspect]
     Active Substance: DULOXETINE HYDROCHLORIDE
     Dosage: 90 MG, QD
     Route: 048
     Dates: start: 20130801, end: 20131208

REACTIONS (19)
  - Syncope [Unknown]
  - Dysphoria [Unknown]
  - Sleep disorder [Unknown]
  - Agitation [Unknown]
  - Withdrawal syndrome [Unknown]
  - Irritability [Unknown]
  - Sensory disturbance [Unknown]
  - Anxiety [Unknown]
  - Suicidal ideation [Unknown]
  - Seizure [Unknown]
  - Mood swings [Unknown]
  - Nausea [Unknown]
  - Tremor [Unknown]
  - Headache [Unknown]
  - Vertigo [Unknown]
  - Dizziness [Unknown]
  - Insomnia [Unknown]
  - Nightmare [Unknown]
  - Affect lability [Unknown]

NARRATIVE: CASE EVENT DATE: 20140501
